FAERS Safety Report 12767503 (Version 2)
Quarter: 2018Q4

REPORT INFORMATION
  Report Type: Spontaneous
  Country: US (occurrence: US)
  Receive Date: 20160921
  Receipt Date: 20181018
  Transmission Date: 20190204
  Serious: Yes (Other)
  Sender: FDA-Public Use
  Company Number: US-PFIZER INC-2016441683

PATIENT
  Age: 50 Year
  Sex: Female

DRUGS (2)
  1. ENBREL [Suspect]
     Active Substance: ETANERCEPT
     Indication: PSORIATIC ARTHROPATHY
     Dosage: UNK UNK, QWK
     Route: 065
     Dates: start: 2014
  2. METHOTREXATE SODIUM. [Suspect]
     Active Substance: METHOTREXATE SODIUM
     Dosage: UNK
     Route: 065

REACTIONS (12)
  - Limb discomfort [Unknown]
  - Peripheral swelling [Not Recovered/Not Resolved]
  - Wound [Recovered/Resolved]
  - Injection site pain [Unknown]
  - Drug ineffective [Unknown]
  - Visual impairment [Unknown]
  - Stress [Unknown]
  - Arthropathy [Not Recovered/Not Resolved]
  - Nail disorder [Unknown]
  - Liver function test abnormal [Unknown]
  - Injection site haemorrhage [Unknown]
  - Psoriatic arthropathy [Unknown]

NARRATIVE: CASE EVENT DATE: 2018
